FAERS Safety Report 9543118 (Version 1)
Quarter: 2013Q3

REPORT INFORMATION
  Report Type: Spontaneous
  Country: US (occurrence: US)
  Receive Date: 20130923
  Receipt Date: 20130923
  Transmission Date: 20140515
  Serious: Yes (Hospitalization)
  Sender: FDA-Public Use
  Company Number: US-PFIZER INC-2013271577

PATIENT
  Age: 77 Year
  Sex: Female
  Weight: 74.83 kg

DRUGS (3)
  1. DILANTIN-125 [Suspect]
     Indication: CONVULSION PROPHYLAXIS
     Dosage: 1500 MG, UNK
     Dates: start: 1980
  2. DILANTIN-125 [Suspect]
     Dosage: 800 MG, UNK
  3. DILANTIN-125 [Suspect]
     Dosage: 100 MG, 4X/DAY

REACTIONS (1)
  - Myocardial infarction [Recovered/Resolved]
